FAERS Safety Report 5804347-3 (Version None)
Quarter: 2008Q3

REPORT INFORMATION
  Report Type: 
  Country: None (occurrence: None)
  Receive Date: 20080707
  Receipt Date: 20080707
  Transmission Date: 20090109
  Serious: Yes (Death)
  Sender: FDA-Public Use
  Company Number: None

PATIENT
  Sex: Female
  Weight: 67.3 kg

DRUGS (3)
  1. FLUDARABINE PHOSPHATE [Suspect]
     Indication: ACUTE MYELOID LEUKAEMIA
     Dosage: 45MG DAILY IV BOLUS
     Route: 040
     Dates: start: 20080503, end: 20080507
  2. BUSULFAN [Suspect]
     Dosage: 220MG DAILY IV BOLUS
     Route: 040
     Dates: start: 20080504, end: 20080507
  3. CAMPATH [Concomitant]

REACTIONS (7)
  - ABSCESS FUNGAL [None]
  - COUGH [None]
  - ENTEROCOCCAL INFECTION [None]
  - HYPOXIA [None]
  - LUNG INFECTION [None]
  - PYREXIA [None]
  - RESPIRATORY FAILURE [None]
